FAERS Safety Report 17731233 (Version 2)
Quarter: 2020Q2

REPORT INFORMATION
  Report Type: Spontaneous
  Country: US (occurrence: US)
  Receive Date: 20200430
  Receipt Date: 20200511
  Transmission Date: 20200714
  Serious: Yes (Hospitalization, Other)
  Sender: FDA-Public Use
  Company Number: US-BRISTOL-MYERS SQUIBB COMPANY-BMS-2020-035031

PATIENT
  Age: 86 Year
  Sex: Female

DRUGS (3)
  1. ELIQUIS [Suspect]
     Active Substance: APIXABAN
     Indication: CEREBROVASCULAR ACCIDENT PROPHYLAXIS
     Dosage: 2.5 MILLIGRAM, BID
     Route: 048
     Dates: start: 20191121, end: 20200401
  2. LISINOPRIL. [Concomitant]
     Active Substance: LISINOPRIL
     Indication: HYPERTENSION
     Dosage: 2.5 MILLIGRAM, QD
     Route: 048
     Dates: start: 20200324, end: 20200331
  3. ATORVASTATIN [Concomitant]
     Active Substance: ATORVASTATIN
     Indication: HYPERLIPIDAEMIA
     Dosage: 80 MILLIGRAM, QD
     Route: 048
     Dates: start: 20200324, end: 20200331

REACTIONS (9)
  - Subarachnoid haemorrhage [Unknown]
  - Basal ganglia infarction [Unknown]
  - Supraventricular tachycardia [Unknown]
  - Leukoencephalopathy [Unknown]
  - Thyroid mass [Unknown]
  - Intraventricular haemorrhage [Unknown]
  - Metastases to lung [Unknown]
  - Atrial fibrillation [Unknown]
  - Fall [Unknown]

NARRATIVE: CASE EVENT DATE: 20200401
